FAERS Safety Report 5545208-7 (Version None)
Quarter: 2007Q4

REPORT INFORMATION
  Report Type: 
  Country: None (occurrence: None)
  Receive Date: 20071211
  Receipt Date: 20071207
  Transmission Date: 20080405
  Serious: Yes (Disabling)
  Sender: FDA-Public Use
  Company Number: GB-SP-2007-04205

PATIENT
  Sex: Female

DRUGS (1)
  1. IMMUCYST [Suspect]
     Indication: BLADDER CANCER RECURRENT
     Route: 043
     Dates: start: 20070831, end: 20070928

REACTIONS (2)
  - ARTHRALGIA [None]
  - JOINT SWELLING [None]
